FAERS Safety Report 5712118-1 (Version None)
Quarter: 2008Q2

REPORT INFORMATION
  Report Type: 
  Country: None (occurrence: None)
  Receive Date: 20080418
  Receipt Date: 20080402
  Transmission Date: 20081010
  Serious: No
  Sender: FDA-Public Use
  Company Number: US023152

PATIENT
  Age: 40 Year
  Sex: Female
  Weight: 45.3597 kg

DRUGS (10)
  1. FENTORA [Suspect]
     Indication: COMPLEX REGIONAL PAIN SYNDROME
     Dosage: 1600 UG QID PRN BUCCAL
     Route: 002
     Dates: start: 20080306
  2. FENTANYL [Concomitant]
  3. PROVIGIL [Concomitant]
  4. ZANAFLEX [Concomitant]
  5. KLONOPIN [Concomitant]
  6. CYMBALTA [Concomitant]
  7. LYRICA [Concomitant]
  8. AMBIEN [Concomitant]
  9. PROMETHAZINE [Concomitant]
  10. ZOFRAN [Concomitant]

REACTIONS (3)
  - DRUG EFFECT DECREASED [None]
  - DRUG PRESCRIBING ERROR [None]
  - STOMATITIS [None]
